FAERS Safety Report 9740358 (Version 2)
Quarter: 2014Q1

REPORT INFORMATION
  Report Type: Spontaneous
  Country: IE (occurrence: IE)
  Receive Date: 20131209
  Receipt Date: 20140123
  Transmission Date: 20141002
  Serious: Yes (Hospitalization)
  Sender: FDA-Public Use
  Company Number: IE-B.I. PHARMACEUTICALS,INC./RIDGEFIELD-2013-BI-40604UK

PATIENT
  Age: 83 Year
  Sex: Male

DRUGS (23)
  1. PRADAXA [Suspect]
     Dosage: 220 MG
     Route: 048
     Dates: start: 20130905, end: 20131029
  2. WARFARIN [Suspect]
     Route: 048
  3. SPIRONOLACTONE [Concomitant]
     Indication: CARDIAC FAILURE CONGESTIVE
     Dosage: 25 MG
     Route: 048
  4. SPIRONOLACTONE [Concomitant]
     Indication: MYOCARDIAL ISCHAEMIA
  5. SPIRONOLACTONE [Concomitant]
     Indication: RENAL FAILURE CHRONIC
  6. BUMETANIDE [Concomitant]
     Indication: CARDIAC FAILURE CONGESTIVE
     Dosage: 1 MG
     Route: 048
  7. BUMETANIDE [Concomitant]
     Indication: MYOCARDIAL ISCHAEMIA
  8. BUMETANIDE [Concomitant]
     Indication: RENAL FAILURE CHRONIC
  9. ASPIRIN [Concomitant]
     Indication: CARDIAC FAILURE CONGESTIVE
     Dosage: 75 MG
     Route: 048
  10. ASPIRIN [Concomitant]
     Indication: MYOCARDIAL ISCHAEMIA
  11. ASPIRIN [Concomitant]
     Indication: RENAL FAILURE CHRONIC
  12. PRAVASTATIN [Concomitant]
     Indication: CARDIAC FAILURE CONGESTIVE
     Dosage: 40 MG
     Route: 048
  13. PRAVASTATIN [Concomitant]
     Indication: MYOCARDIAL ISCHAEMIA
  14. PRAVASTATIN [Concomitant]
     Indication: RENAL FAILURE CHRONIC
  15. BISOPROLOL [Concomitant]
     Indication: CARDIAC FAILURE CONGESTIVE
     Dosage: 2.5 MG
     Route: 048
  16. BISOPROLOL [Concomitant]
     Indication: MYOCARDIAL ISCHAEMIA
  17. BISOPROLOL [Concomitant]
     Indication: RENAL FAILURE CHRONIC
  18. FINASTERIDE [Concomitant]
     Indication: CARDIAC FAILURE CONGESTIVE
     Dosage: 5 MG
     Route: 048
  19. FINASTERIDE [Concomitant]
     Indication: MYOCARDIAL ISCHAEMIA
  20. FINASTERIDE [Concomitant]
     Indication: RENAL FAILURE CHRONIC
  21. PERINDOPRIL [Concomitant]
     Indication: CARDIAC FAILURE CONGESTIVE
     Dosage: 5 MG
     Route: 048
  22. PERINDOPRIL [Concomitant]
     Indication: MYOCARDIAL ISCHAEMIA
  23. PERINDOPRIL [Concomitant]
     Indication: RENAL FAILURE CHRONIC

REACTIONS (7)
  - Epistaxis [Recovered/Resolved]
  - Anaemia [Recovered/Resolved]
  - Fatigue [Recovered/Resolved]
  - Malaise [Recovered/Resolved]
  - Haemoglobin decreased [Recovered/Resolved]
  - International normalised ratio increased [Recovered/Resolved]
  - Medication error [Recovered/Resolved]
